FAERS Safety Report 13766706 (Version 1)
Quarter: 2017Q3

REPORT INFORMATION
  Report Type: Spontaneous
  Country: IT (occurrence: IT)
  Receive Date: 20170719
  Receipt Date: 20170719
  Transmission Date: 20171127
  Serious: Yes (Hospitalization)
  Sender: FDA-Public Use
  Company Number: IT-PFIZER INC-2611875

PATIENT
  Age: 68 Year
  Sex: Male

DRUGS (1)
  1. ANZATAX (PACLITAXEL) [Suspect]
     Active Substance: PACLITAXEL
     Indication: LUNG NEOPLASM MALIGNANT
     Dosage: 160 MG, CYCLICAL
     Route: 042
     Dates: start: 20141027, end: 20141027

REACTIONS (4)
  - Loss of consciousness [Recovering/Resolving]
  - Urinary incontinence [Recovering/Resolving]
  - Dyspnoea [Recovering/Resolving]
  - Vomiting [Recovering/Resolving]

NARRATIVE: CASE EVENT DATE: 20141027
